FAERS Safety Report 23571591 (Version 3)
Quarter: 2024Q4

REPORT INFORMATION
  Report Type: Spontaneous
  Country: JP (occurrence: JP)
  Receive Date: 20240227
  Receipt Date: 20241122
  Transmission Date: 20250114
  Serious: Yes (Death, Life-Threatening, Other)
  Sender: ALEXION PHARMACEUTICALS
  Company Number: 2024A047116

PATIENT

DRUGS (18)
  1. IMFINZI [Suspect]
     Active Substance: DURVALUMAB
     Indication: Bile duct cancer
     Dosage: 1500 MILLIGRAM, Q3W
  2. IMFINZI [Suspect]
     Active Substance: DURVALUMAB
     Dosage: 1500 MILLIGRAM, Q3W
  3. IMFINZI [Suspect]
     Active Substance: DURVALUMAB
     Dosage: 1500 MILLIGRAM, Q3W
  4. IMFINZI [Suspect]
     Active Substance: DURVALUMAB
     Dosage: 1500 MILLIGRAM, Q3W
  5. GEMCITABINE [Suspect]
     Active Substance: GEMCITABINE
     Indication: Bile duct cancer
     Dosage: DOSE UNKNOWN
  6. GEMCITABINE [Suspect]
     Active Substance: GEMCITABINE
     Dosage: DOSE UNKNOWN
  7. GEMCITABINE [Suspect]
     Active Substance: GEMCITABINE
     Dosage: 14 DOSES
  8. GEMCITABINE [Suspect]
     Active Substance: GEMCITABINE
     Dosage: 14 DOSES
  9. GEMCITABINE [Suspect]
     Active Substance: GEMCITABINE
     Dosage: 14 DOSES
  10. GEMCITABINE [Suspect]
     Active Substance: GEMCITABINE
     Dosage: 14 DOSES
  11. CISPLATIN [Suspect]
     Active Substance: CISPLATIN
     Indication: Bile duct cancer
     Dosage: 14 DOSES
  12. CISPLATIN [Suspect]
     Active Substance: CISPLATIN
     Dosage: 14 DOSES
  13. CISPLATIN [Suspect]
     Active Substance: CISPLATIN
     Dosage: 14 DOSES
  14. CISPLATIN [Suspect]
     Active Substance: CISPLATIN
     Dosage: 14 DOSES
  15. BARACLUDE [Concomitant]
     Active Substance: ENTECAVIR
     Dosage: DOSE UNKNOWN
  16. BARACLUDE [Concomitant]
     Active Substance: ENTECAVIR
     Dosage: DOSE UNKNOWN
  17. BARACLUDE [Concomitant]
     Active Substance: ENTECAVIR
     Dosage: DOSE UNKNOWN
  18. BARACLUDE [Concomitant]
     Active Substance: ENTECAVIR
     Dosage: DOSE UNKNOWN

REACTIONS (8)
  - Haemorrhage [Fatal]
  - Septic shock [Fatal]
  - Platelet count decreased [Unknown]
  - Coagulopathy [Unknown]
  - Dehydration [Unknown]
  - Circulatory collapse [Unknown]
  - Hypoxia [Recovering/Resolving]
  - Pneumonia [Fatal]
